FAERS Safety Report 5122938-2 (Version None)
Quarter: 2006Q4

REPORT INFORMATION
  Report Type: 
  Country: None (occurrence: None)
  Receive Date: 20061009
  Receipt Date: 20060719
  Transmission Date: 20070319
  Serious: Yes (Hospitalization)
  Sender: FDA-Public Use
  Company Number: US-ROCHE-456110

PATIENT
  Age: 48 Year
  Sex: Male
  Weight: 88 kg

DRUGS (4)
  1. PEG-INTERFERON ALFA 2A (RO 25-8310) [Suspect]
     Route: 058
     Dates: start: 20050816
  2. RIBAVIRIN [Suspect]
     Route: 048
     Dates: start: 20050816
  3. GLUCOPHAGE [Concomitant]
     Dates: start: 20060103
  4. TYLENOL [Concomitant]

REACTIONS (5)
  - BACTERIAL INFECTION [None]
  - DECUBITUS ULCER [None]
  - OSTEOMYELITIS [None]
  - STAPHYLOCOCCAL INFECTION [None]
  - URINARY TRACT INFECTION [None]
